FAERS Safety Report 5087356-4 (Version None)
Quarter: 2006Q3

REPORT INFORMATION
  Report Type: 
  Country: None (occurrence: None)
  Receive Date: 20060824
  Receipt Date: 20060814
  Transmission Date: 20061208
  Serious: Yes (Other)
  Sender: FDA-Public Use
  Company Number: PHEH2006US10459

PATIENT
  Age: 73 Year
  Sex: Female

DRUGS (5)
  1. AREDIA [Suspect]
     Indication: METASTASES TO BONE
     Dosage: 90 MG EVERY 3-4 WEEKS
     Dates: start: 20030501, end: 20031201
  2. ZOMETA [Suspect]
     Indication: METASTASES TO BONE
     Dosage: 4 MG EVERY 4 WEEKS
     Dates: start: 20040101, end: 20050401
  3. ZOMETA [Suspect]
     Dosage: 4 MG EVERY 12 WEEKS
     Dates: start: 20050401, end: 20060401
  4. TAMOXIFEN CITRATE [Concomitant]
     Indication: BREAST CANCER METASTATIC
     Dosage: 10 MG, BID
     Route: 048
     Dates: start: 20010901, end: 20020301
  5. FEMARA [Concomitant]
     Indication: BREAST CANCER METASTATIC
     Dosage: 2.5 MG, QD
     Route: 048
     Dates: start: 20020301

REACTIONS (13)
  - BONE DEBRIDEMENT [None]
  - BONE DISORDER [None]
  - FISTULA [None]
  - HYPERBARIC OXYGEN THERAPY [None]
  - IMPAIRED HEALING [None]
  - INFLAMMATION [None]
  - ORAL INFECTION [None]
  - ORAL SURGERY [None]
  - OSTEOMYELITIS [None]
  - OSTEONECROSIS [None]
  - SWELLING [None]
  - TENDERNESS [None]
  - TOOTH EXTRACTION [None]
